FAERS Safety Report 7512131-8 (Version None)
Quarter: 2011Q2

REPORT INFORMATION
  Report Type: 
  Country: None (occurrence: None)
  Receive Date: 20110520
  Receipt Date: 20110509
  Transmission Date: 20111010
  Serious: Yes (Other)
  Sender: FDA-Public Use
  Company Number: DSJ-2011-09155

PATIENT
  Age: 46 Year
  Sex: Female

DRUGS (5)
  1. NORFLOXACIN (NORFLOXACIN) (NORFLOXACIN) [Concomitant]
  2. ATENOLOL [Concomitant]
  3. AMLODIPINE BESYLATE AND OLMESARTAN MEDOXOMIL [Suspect]
     Indication: HYPERTENSION
     Dosage: 40/5 MG (1 IN 1 D), PER ORAL
     Route: 048
     Dates: start: 20110504
  4. HYDROCHLOROTHIAZIDE [Concomitant]
  5. BIPROFENIDE [Concomitant]

REACTIONS (6)
  - ASTHENIA [None]
  - MUSCLE TIGHTNESS [None]
  - HYPERHIDROSIS [None]
  - BRADYCARDIA [None]
  - BLOOD PRESSURE FLUCTUATION [None]
  - HEADACHE [None]
